FAERS Safety Report 21747280 (Version 2)
Quarter: 2023Q1

REPORT INFORMATION
  Report Type: Spontaneous
  Country: DK (occurrence: DK)
  Receive Date: 20221219
  Receipt Date: 20230110
  Transmission Date: 20230417
  Serious: Yes (Other)
  Sender: FDA-Public Use
  Company Number: DK-STADA-264063

PATIENT
  Age: 62 Year
  Sex: Female

DRUGS (22)
  1. PEMETREXED [Suspect]
     Active Substance: PEMETREXED
     Indication: Non-small cell lung cancer metastatic
     Dosage: UNK
     Route: 065
     Dates: start: 2020, end: 2020
  2. PEMETREXED [Suspect]
     Active Substance: PEMETREXED
     Indication: Metastases to the mediastinum
  3. PEMETREXED [Suspect]
     Active Substance: PEMETREXED
     Indication: Metastases to pituitary gland
  4. PEMETREXED [Suspect]
     Active Substance: PEMETREXED
     Indication: Non-small cell lung cancer metastatic
  5. PEMETREXED [Suspect]
     Active Substance: PEMETREXED
     Indication: Metastases to liver
  6. PEMETREXED [Suspect]
     Active Substance: PEMETREXED
     Indication: Metastases to lymph nodes
  7. PEMETREXED [Suspect]
     Active Substance: PEMETREXED
     Indication: Metastases to spine
  8. CARBOPLATIN [Suspect]
     Active Substance: CARBOPLATIN
     Indication: Non-small cell lung cancer metastatic
     Dosage: UNK
     Route: 065
     Dates: start: 2020, end: 2020
  9. CARBOPLATIN [Suspect]
     Active Substance: CARBOPLATIN
     Indication: Metastases to pituitary gland
  10. CARBOPLATIN [Suspect]
     Active Substance: CARBOPLATIN
     Indication: Metastases to lymph nodes
  11. CARBOPLATIN [Suspect]
     Active Substance: CARBOPLATIN
     Indication: Non-small cell lung cancer metastatic
  12. CARBOPLATIN [Suspect]
     Active Substance: CARBOPLATIN
     Indication: Metastases to the mediastinum
  13. CARBOPLATIN [Suspect]
     Active Substance: CARBOPLATIN
     Indication: Metastases to spine
  14. CARBOPLATIN [Suspect]
     Active Substance: CARBOPLATIN
     Indication: Metastases to liver
  15. OSIMERTINIB [Suspect]
     Active Substance: OSIMERTINIB
     Indication: Non-small cell lung cancer metastatic
     Dosage: 80 MILLIGRAM, DAILY
     Route: 065
     Dates: start: 2019
  16. OSIMERTINIB [Suspect]
     Active Substance: OSIMERTINIB
     Indication: Metastases to pituitary gland
     Dosage: 40 MILLIGRAM, DAILY
     Route: 065
     Dates: start: 2019
  17. OSIMERTINIB [Suspect]
     Active Substance: OSIMERTINIB
     Indication: Metastases to lymph nodes
  18. OSIMERTINIB [Suspect]
     Active Substance: OSIMERTINIB
     Indication: Metastases to the mediastinum
  19. OSIMERTINIB [Suspect]
     Active Substance: OSIMERTINIB
     Indication: Metastases to liver
  20. OSIMERTINIB [Suspect]
     Active Substance: OSIMERTINIB
     Indication: Metastases to spine
  21. PRALSETINIB [Concomitant]
     Active Substance: PRALSETINIB
     Indication: Non-small cell lung cancer metastatic
     Dosage: 400 MILLIGRAM, DAILY
     Route: 065
  22. PRALSETINIB [Concomitant]
     Active Substance: PRALSETINIB
     Dosage: 200 MILLIGRAM, DAILY
     Route: 065

REACTIONS (2)
  - Myelosuppression [Unknown]
  - Drug intolerance [Unknown]

NARRATIVE: CASE EVENT DATE: 20200101
